FAERS Safety Report 16095198 (Version 1)
Quarter: 2019Q1

REPORT INFORMATION
  Report Type: Spontaneous
  Country: US (occurrence: US)
  Receive Date: 20190320
  Receipt Date: 20190320
  Transmission Date: 20190418
  Serious: No
  Sender: FDA-Public Use
  Company Number: US-TRIS PHARMA, INC.-2019TRISPO00277

PATIENT

DRUGS (3)
  1. DYANAVEL XR [Suspect]
     Active Substance: AMPHETAMINE
     Indication: PRODUCT USED FOR UNKNOWN INDICATION
     Dosage: 4 ML, QD
     Route: 065
     Dates: start: 201806
  2. DYANAVEL XR [Suspect]
     Active Substance: AMPHETAMINE
     Dosage: 6.5 ML, QD
     Route: 065
  3. DYANAVEL XR [Suspect]
     Active Substance: AMPHETAMINE
     Dosage: 8 ML, UNK
     Route: 065

REACTIONS (4)
  - Drug effect incomplete [Unknown]
  - Weight increased [Unknown]
  - Psychomotor hyperactivity [Unknown]
  - Increased appetite [Unknown]
